FAERS Safety Report 6150713 (Version 2)
Quarter: 2013Q1

REPORT INFORMATION
  Report Type: Spontaneous
  Country: CY (occurrence: CY)
  Receive Date: 20061020
  Receipt Date: 20130311
  Transmission Date: 20140127
  Serious: Yes (Other)
  Sender: FDA-Public Use
  Company Number: PHFR2006CY03039

PATIENT
  Age: 67 Year
  Sex: Female

DRUGS (2)
  1. ZOMETA [Suspect]
     Indication: METASTASES TO BONE
     Dosage: 4 MG, QMO
     Route: 042
     Dates: start: 200602, end: 200609
  2. FEMARA [Concomitant]
     Dosage: 2.5 MG, UNK

REACTIONS (3)
  - Osteonecrosis of jaw [Unknown]
  - Toothache [Unknown]
  - Jaw cyst [Unknown]
